FAERS Safety Report 20668034 (Version 2)
Quarter: 2022Q2

REPORT INFORMATION
  Report Type: Spontaneous
  Country: US (occurrence: US)
  Receive Date: 20220404
  Receipt Date: 20220510
  Transmission Date: 20220721
  Serious: No
  Sender: FDA-Public Use
  Company Number: US-BRISTOL-MYERS SQUIBB COMPANY-2022-011962

PATIENT
  Age: 66 Year
  Sex: Male

DRUGS (1)
  1. POMALYST [Suspect]
     Active Substance: POMALIDOMIDE
     Indication: Agranulocytosis
     Dosage: FREQUENCY- TAKE 1 CAPSULE BY MOUTH DAILY FOR 21 DAYS THEN OFF 7 DAYS.
     Route: 048
     Dates: start: 20181031

REACTIONS (1)
  - Treatment noncompliance [Unknown]
